FAERS Safety Report 9587917 (Version 2)
Quarter: 2014Q1

REPORT INFORMATION
  Report Type: Spontaneous
  Country: US (occurrence: US)
  Receive Date: 20131003
  Receipt Date: 20140313
  Transmission Date: 20141002
  Serious: Yes (Hospitalization)
  Sender: FDA-Public Use
  Company Number: US-B.I. PHARMACEUTICALS,INC./RIDGEFIELD-2013-BI-30292BP

PATIENT
  Sex: Male
  Weight: 129.27 kg

DRUGS (11)
  1. PRADAXA [Suspect]
     Indication: ATRIAL FIBRILLATION
     Dosage: 300 MG
     Route: 065
     Dates: start: 20110728, end: 20110930
  2. METFORMIN [Concomitant]
     Route: 065
     Dates: start: 2000
  3. DIGOXIN [Concomitant]
     Route: 065
     Dates: start: 2000
  4. ALLOPURINOL [Concomitant]
     Dosage: 100 MG
     Route: 065
     Dates: start: 2000
  5. METOPROLOL [Concomitant]
     Dosage: 100 MG
     Route: 065
     Dates: start: 2000
  6. ASPIRIN [Concomitant]
     Dosage: 325 MG
     Route: 065
     Dates: start: 2000
  7. BUMEX [Concomitant]
     Dosage: 2 MG
     Route: 065
     Dates: start: 2000
  8. DIOVAN HCT [Concomitant]
     Route: 065
     Dates: start: 2000
  9. TRICOR [Concomitant]
     Route: 065
     Dates: start: 2000
  10. SIMVASTATIN [Concomitant]
     Dosage: 40 MG
     Route: 065
     Dates: start: 2000
  11. LISINOPRIL/HYDROCHLORTHIAZIDE [Concomitant]
     Route: 065

REACTIONS (5)
  - Gastrointestinal haemorrhage [Unknown]
  - Anaemia [Unknown]
  - Coagulopathy [Unknown]
  - Dyspepsia [Unknown]
  - Contusion [Unknown]
